FAERS Safety Report 6701274-4 (Version None)
Quarter: 2010Q2

REPORT INFORMATION
  Report Type: 
  Country: None (occurrence: None)
  Receive Date: 20100427
  Receipt Date: 20100420
  Transmission Date: 20101027
  Serious: Yes (Other)
  Sender: FDA-Public Use
  Company Number: AXC-2010-000060

PATIENT
  Age: 55 Year
  Sex: Female

DRUGS (2)
  1. SALOFALK (MESALAMINE) TABLET, 500MG [Suspect]
     Indication: ENTEROCOLITIS
     Dosage: 4 Q, QD, ORAL
     Route: 048
     Dates: start: 20100226, end: 20100308
  2. SALOFALK (MESALAMINE) RECTAL SUSPENSION, 4G/60G [Suspect]
     Indication: ENTEROCOLITIS
     Dosage: 4 G, QD, RECTAL
     Route: 054
     Dates: start: 20100226

REACTIONS (8)
  - ABASIA [None]
  - ARTHRALGIA [None]
  - ASTHENIA [None]
  - CHILLS [None]
  - DYSSTASIA [None]
  - HEADACHE [None]
  - NAUSEA [None]
  - PYREXIA [None]
